FAERS Safety Report 17870895 (Version 1)
Quarter: 2020Q2

REPORT INFORMATION
  Report Type: Spontaneous
  Country: US (occurrence: US)
  Receive Date: 20200606
  Receipt Date: 20200606
  Transmission Date: 20200714
  Serious: Yes (Life-Threatening)
  Sender: FDA-Public Use
  Company Number: None

PATIENT
  Age: 71 Year
  Sex: Male
  Weight: 138.35 kg

DRUGS (4)
  1. METFORMIN [Concomitant]
     Active Substance: METFORMIN HYDROCHLORIDE
  2. AMOXICILLIN. [Concomitant]
     Active Substance: AMOXICILLIN
     Dates: start: 20200602, end: 20200602
  3. AMOXICILLIN. [Suspect]
     Active Substance: AMOXICILLIN
  4. NOVOLOG [Concomitant]
     Active Substance: INSULIN ASPART
     Dates: start: 20170101

REACTIONS (2)
  - Blood glucose increased [None]
  - Hypoglycaemia [None]

NARRATIVE: CASE EVENT DATE: 20200603
